FAERS Safety Report 4396535-0 (Version None)
Quarter: 2004Q2

REPORT INFORMATION
  Report Type: 
  Country: None (occurrence: None)
  Receive Date: 20040621
  Receipt Date: 20031014
  Transmission Date: 20050107
  Serious: Yes (Hospitalization)
  Sender: FDA-Public Use
  Company Number: USA-2003-0010238

PATIENT
  Age: 48 Year
  Sex: Male

DRUGS (4)
  1. OXYCONTIN [Suspect]
     Indication: PAIN
     Dosage: 40 MG, BID
     Dates: start: 20030901, end: 20031001
  2. TRILEPTAL [Concomitant]
  3. DILAUDID [Concomitant]
  4. LACTULOSE [Concomitant]

REACTIONS (1)
  - CONSTIPATION [None]
